FAERS Safety Report 25970151 (Version 1)
Quarter: 2025Q4

REPORT INFORMATION
  Report Type: Spontaneous
  Country: EU (occurrence: EU)
  Receive Date: 20251028
  Receipt Date: 20251028
  Transmission Date: 20260118
  Serious: Yes (Other)
  Sender: MYLAN
  Company Number: None

PATIENT
  Age: 33 Year
  Sex: Female
  Weight: 71 kg

DRUGS (2)
  1. DOXYCYCLINE HYCLATE [Suspect]
     Active Substance: DOXYCYCLINE HYCLATE
     Indication: Hysterectomy
     Dosage: 2 DOSAGE FORM, QD (2/DAY: 1 MORNING - 1 EVENING FOR 10 DAYS) (SCORED TABLET)
     Dates: start: 20251007, end: 20251009
  2. TRAMADOL [Suspect]
     Active Substance: TRAMADOL
     Indication: Endometriosis
     Dosage: 100 MILLIGRAM, 1 TOTAL (TREATMENT ON DEMAND DEPENDING ON ENDOMETRIOSIS PAIN. ON OCTOBER 9, 2025
     Dates: start: 20251009, end: 20251009

REACTIONS (5)
  - Respiratory disorder [Not Recovered/Not Resolved]
  - Vertigo [Not Recovered/Not Resolved]
  - Tremor [Not Recovered/Not Resolved]
  - Vomiting [Not Recovered/Not Resolved]
  - Headache [Not Recovered/Not Resolved]

NARRATIVE: CASE EVENT DATE: 20251009
